FAERS Safety Report 5127873-1 (Version None)
Quarter: 2006Q4

REPORT INFORMATION
  Report Type: 
  Country: None (occurrence: None)
  Receive Date: 20061010
  Receipt Date: 20060927
  Transmission Date: 20070319
  Serious: Yes (Other)
  Sender: FDA-Public Use
  Company Number: CAWYE068228SEP06

PATIENT
  Age: 3 Month

DRUGS (1)
  1. EFFEXOR XR [Suspect]
     Route: 063
     Dates: end: 20060101

REACTIONS (5)
  - CHILD ABUSE [None]
  - DRUG EXPOSURE VIA BREAST MILK [None]
  - DRUG WITHDRAWAL SYNDROME [None]
  - IRRITABILITY [None]
  - RIB FRACTURE [None]
